FAERS Safety Report 4443551-6 (Version None)
Quarter: 2004Q3

REPORT INFORMATION
  Report Type: 
  Country: None (occurrence: None)
  Receive Date: 20040901
  Receipt Date: 20040817
  Transmission Date: 20050211
  Serious: Yes (Disabling, Other)
  Sender: FDA-Public Use
  Company Number: DSA_60095-2002

PATIENT
  Age: 30 Year
  Sex: Female

DRUGS (3)
  1. DIHYDERGOT [Suspect]
     Indication: MIGRAINE
     Dosage: 1 DAILY
     Dates: start: 19990926
  2. ZOMIG [Suspect]
     Indication: MIGRAINE
     Dosage: 5 MG ONCE PO
     Route: 048
     Dates: start: 19990626
  3. ORAL CONTRACEPTIVE [Concomitant]

REACTIONS (6)
  - BLINDNESS UNILATERAL [None]
  - CEREBRAL INFARCTION [None]
  - DRUG INTERACTION [None]
  - FALL [None]
  - THERAPY NON-RESPONDER [None]
  - VOMITING [None]
